FAERS Safety Report 21872117 (Version 2)
Quarter: 2023Q1

REPORT INFORMATION
  Report Type: Other
  Country: US (occurrence: US)
  Receive Date: 20230117
  Receipt Date: 20230322
  Transmission Date: 20230418
  Serious: Yes (Other)
  Sender: FDA-Public Use
  Company Number: US-002147023-NVSC2022US303174

PATIENT
  Age: 42 Year
  Sex: Male

DRUGS (1)
  1. OMALIZUMAB [Suspect]
     Active Substance: OMALIZUMAB
     Indication: Product used for unknown indication
     Dosage: UNK, 1 EXPSOSURE
     Route: 065

REACTIONS (4)
  - Angioedema [Unknown]
  - Nasal congestion [Unknown]
  - Wheezing [Unknown]
  - Rash [Unknown]
